FAERS Safety Report 6854244-X (Version None)
Quarter: 2010Q3

REPORT INFORMATION
  Report Type: 
  Country: None (occurrence: None)
  Receive Date: 20100717
  Receipt Date: 20071231
  Transmission Date: 20110219
  Serious: No
  Sender: FDA-Public Use
  Company Number: US-PFIZER INC-2008001123

PATIENT
  Sex: Female
  Weight: 79.545 kg

DRUGS (10)
  1. CHANTIX [Suspect]
     Indication: SMOKING CESSATION THERAPY
     Route: 048
     Dates: start: 20071231
  2. NEXIUM [Concomitant]
  3. TRAZODONE HYDROCHLORIDE [Concomitant]
  4. XANAX [Concomitant]
  5. MORPHINE [Concomitant]
  6. CHLORAZEPAM [Concomitant]
  7. LIPITOR [Concomitant]
  8. MIRALAX [Concomitant]
  9. MILK OF MAGNESIA TAB [Concomitant]
  10. SENOKOT [Concomitant]

REACTIONS (1)
  - NAUSEA [None]
